FAERS Safety Report 20654589 (Version 1)
Quarter: 2022Q1

REPORT INFORMATION
  Report Type: Spontaneous
  Country: US (occurrence: None)
  Receive Date: 20220329
  Receipt Date: 20220329
  Transmission Date: 20220423
  Serious: No
  Sender: FDA-Public Use
  Company Number: None

PATIENT
  Age: 69 Year
  Sex: Male

DRUGS (1)
  1. SPRYCEL [Suspect]
     Active Substance: DASATINIB
     Indication: Philadelphia positive chronic myeloid leukaemia
     Dosage: FREQUENCY : DAILY;?OTHER ROUTE : ROUTE;?
     Route: 050
     Dates: start: 20220320

REACTIONS (5)
  - Dizziness [None]
  - Decreased activity [None]
  - Fluid retention [None]
  - Therapy cessation [None]
  - Presyncope [None]

NARRATIVE: CASE EVENT DATE: 20220322
